FAERS Safety Report 19705111 (Version 1)
Quarter: 2021Q3

REPORT INFORMATION
  Report Type: Spontaneous
  Country: US (occurrence: US)
  Receive Date: 20210814
  Receipt Date: 20210814
  Transmission Date: 20211014
  Serious: Yes (Death, Hospitalization)
  Sender: FDA-Public Use
  Company Number: None

PATIENT
  Sex: Female
  Weight: 87 kg

DRUGS (2)
  1. PALBOCICLIB (PD?0332991) [Concomitant]
     Active Substance: PALBOCICLIB
  2. FEMARA [Suspect]
     Active Substance: LETROZOLE

REACTIONS (18)
  - Discomfort [None]
  - Acute kidney injury [None]
  - Bowel movement irregularity [None]
  - Terminal ileitis [None]
  - Hypotension [None]
  - Abdominal abscess [None]
  - General physical health deterioration [None]
  - Septic shock [None]
  - Blood lactic acid increased [None]
  - Ascites [None]
  - Lactic acidosis [None]
  - Colitis [None]
  - Neutropenic colitis [None]
  - Nausea [None]
  - Vomiting [None]
  - Acute respiratory failure [None]
  - Terminal state [None]
  - Abdominal pain [None]

NARRATIVE: CASE EVENT DATE: 20210730
